FAERS Safety Report 7956345 (Version 5)
Quarter: 2013Q1

REPORT INFORMATION
  Report Type: Spontaneous
  Country: US (occurrence: US)
  Receive Date: 20110524
  Receipt Date: 20130111
  Transmission Date: 20140127
  Serious: Yes (Life-Threatening, Hospitalization)
  Sender: FDA-Public Use
  Company Number: US-BAYER-2011-042265

PATIENT
  Age: 34 Year
  Sex: Female
  Weight: 83 kg

DRUGS (8)
  1. YASMIN [Suspect]
     Indication: ACNE
     Dates: start: 20061117, end: 20061217
  2. YASMIN [Suspect]
     Indication: HIRSUTISM
  3. YASMIN [Suspect]
     Indication: MENORRHAGIA
  4. YASMIN [Suspect]
     Indication: POLYCYSTIC OVARIES
  5. NIRAVAM [Concomitant]
     Dosage: 2 MG, QD
     Route: 048
  6. ACIPHEX [Concomitant]
     Dosage: 20 MG, QD
     Route: 048
  7. IBUPROFEN [Concomitant]
     Dosage: 400 MG, PRN
  8. METFORMIN [Concomitant]
     Indication: HIRSUTISM
     Dosage: UNK
     Dates: start: 20061207

REACTIONS (17)
  - Mesenteric vein thrombosis [None]
  - Intestinal ischaemia [None]
  - Portal vein thrombosis [None]
  - Peritoneal haemorrhage [None]
  - Hepatic haemorrhage [None]
  - Hepatic haematoma [None]
  - Thrombocytopenia [None]
  - Pain [None]
  - General physical health deterioration [None]
  - Anxiety [None]
  - Emotional distress [None]
  - Nightmare [None]
  - Urinary tract infection [None]
  - Back pain [None]
  - Abdominal pain [None]
  - Pain in extremity [None]
  - Off label use [None]
